FAERS Safety Report 14872838 (Version 1)
Quarter: 2018Q2

REPORT INFORMATION
  Report Type: Spontaneous
  Country: US (occurrence: US)
  Receive Date: 20180510
  Receipt Date: 20180510
  Transmission Date: 20180711
  Serious: No
  Sender: FDA-Public Use
  Company Number: US-JNJFOC-20180417477

PATIENT
  Sex: Male

DRUGS (3)
  1. TYLENOL EXTRA STRENGTH [Suspect]
     Active Substance: ACETAMINOPHEN
     Indication: HERNIA
     Dosage: ONE CAPLET AT 3AM AND THEN WAITED UNTIL 5PM THE SAME DAY AND TOOK??2 MORE
     Route: 065
     Dates: end: 20180411
  2. TYLENOL [Suspect]
     Active Substance: ACETAMINOPHEN
     Route: 065
  3. TYLENOL [Suspect]
     Active Substance: ACETAMINOPHEN
     Indication: HEADACHE
     Dosage: ONE TABLET, WAITED AN HOUR AND THEN??TOOK ANOTHER ONE
     Route: 065

REACTIONS (3)
  - Inappropriate schedule of drug administration [Unknown]
  - Product use in unapproved indication [Unknown]
  - Incorrect dose administered [Unknown]
